FAERS Safety Report 8104513-0 (Version None)
Quarter: 2012Q1

REPORT INFORMATION
  Report Type: 
  Country: None (occurrence: None)
  Receive Date: 20120130
  Receipt Date: 20120119
  Transmission Date: 20120608
  Serious: Yes (Hospitalization)
  Sender: FDA-Public Use
  Company Number: PHHY2012CZ005672

PATIENT
  Sex: Male

DRUGS (2)
  1. AFINITOR [Suspect]
     Dosage: 10 MG DAILY
     Dates: start: 20111101, end: 20120101
  2. INSULIN [Concomitant]

REACTIONS (8)
  - ANAEMIA [None]
  - LABORATORY TEST ABNORMAL [None]
  - CARDIAC FAILURE [None]
  - DIABETES MELLITUS [None]
  - COAGULOPATHY [None]
  - GENERAL PHYSICAL HEALTH DETERIORATION [None]
  - RENAL FAILURE ACUTE [None]
  - HYPERTENSION [None]
